FAERS Safety Report 7559402-7 (Version None)
Quarter: 2011Q2

REPORT INFORMATION
  Report Type: 
  Country: None (occurrence: None)
  Receive Date: 20110621
  Receipt Date: 20110613
  Transmission Date: 20111010
  Serious: Yes (Hospitalization)
  Sender: FDA-Public Use
  Company Number: GB-BRISTOL-MYERS SQUIBB COMPANY-14809818

PATIENT
  Age: 87 Year
  Sex: Male

DRUGS (2)
  1. PLACEBO [Suspect]
     Indication: THROMBOSIS PROPHYLAXIS
     Dosage: INTERRUPTED ON 03OCT09,RESTARTED ON 26APR2010
     Route: 048
     Dates: start: 20090721
  2. WARFARIN SODIUM [Suspect]
     Indication: THROMBOSIS PROPHYLAXIS
     Dosage: 1DF =AS PER INR;INTERRUPTED ON 03OCT09,RESTARTED ON 26APR2010
     Route: 048
     Dates: start: 20090721

REACTIONS (2)
  - HAEMATOMA [None]
  - FALL [None]
